FAERS Safety Report 8384748-2 (Version None)
Quarter: 2012Q2

REPORT INFORMATION
  Report Type: 
  Country: None (occurrence: None)
  Receive Date: 20120524
  Receipt Date: 20110325
  Transmission Date: 20120825
  Serious: Yes (Disabling, Other)
  Sender: FDA-Public Use
  Company Number: US-JNJFOC-20120510170

PATIENT
  Age: 70 Year
  Sex: Male
  Weight: 102 kg

DRUGS (43)
  1. TRAMADOL HYDROCHLORIDE [Suspect]
     Indication: PRODUCT USED FOR UNKNOWN INDICATION
     Route: 065
  2. REGLAN [Suspect]
     Indication: PRODUCT USED FOR UNKNOWN INDICATION
     Route: 065
  3. ASPIRIN [Concomitant]
     Dosage: 2 IN 1 DAY
     Route: 065
  4. CLOZAPINE [Concomitant]
     Indication: PRODUCT USED FOR UNKNOWN INDICATION
     Route: 065
  5. DIGOXIN [Concomitant]
     Indication: PRODUCT USED FOR UNKNOWN INDICATION
     Dosage: 0.125 MG ONETABLET A DAY AND 2 TABLETS ONCE A DAY ALTERNATIVELY
     Route: 065
  6. HYDROCODONE BITARTRATE + ACETAMINOPHEN [Concomitant]
     Indication: PRODUCT USED FOR UNKNOWN INDICATION
     Route: 065
  7. DIAZEPAM [Concomitant]
     Indication: PRODUCT USED FOR UNKNOWN INDICATION
     Route: 065
  8. FUROSEMIDE [Concomitant]
     Indication: DIURETIC THERAPY
     Route: 065
  9. LOSARTAN POTASSIUM [Concomitant]
     Indication: CARDIAC DISORDER
     Dosage: 0.125 MG ONCE A DAY AND TWO PILLS ONCE A DAY ALTERNATIVELY
     Route: 065
  10. MOTRIN [Suspect]
     Indication: PRODUCT USED FOR UNKNOWN INDICATION
     Dosage: AS NEEDED
     Route: 065
  11. PROZAC [Suspect]
     Indication: PRODUCT USED FOR UNKNOWN INDICATION
     Route: 065
  12. BILBERRY [Concomitant]
     Indication: PRODUCT USED FOR UNKNOWN INDICATION
     Route: 065
  13. TIMOLOL MALEATE [Concomitant]
     Indication: ABNORMAL SENSATION IN EYE
     Dosage: FOUR TIMES DAILY
     Route: 065
  14. PRAVASTATIN [Concomitant]
     Indication: PRODUCT USED FOR UNKNOWN INDICATION
     Dosage: ONCE DAILY
     Route: 065
  15. PILOCARPINE [Concomitant]
     Indication: INTRAOCULAR PRESSURE INCREASED
     Route: 065
  16. METFORMIN HCL [Suspect]
     Indication: DIABETES MELLITUS
     Route: 065
     Dates: start: 20101018
  17. VIAGRA [Suspect]
     Indication: PRODUCT USED FOR UNKNOWN INDICATION
     Route: 065
  18. XALATAN [Suspect]
     Indication: PRODUCT USED FOR UNKNOWN INDICATION
     Route: 047
  19. LUVOX [Suspect]
     Indication: PRODUCT USED FOR UNKNOWN INDICATION
     Route: 065
  20. PLAVIX [Suspect]
     Indication: PRODUCT USED FOR UNKNOWN INDICATION
     Route: 065
  21. ASPIRIN [Concomitant]
     Indication: CARDIAC DISORDER
     Route: 065
  22. FOLIC ACID [Concomitant]
     Indication: PRODUCT USED FOR UNKNOWN INDICATION
     Route: 065
  23. THERA TEARS [Concomitant]
     Indication: PRODUCT USED FOR UNKNOWN INDICATION
     Route: 065
  24. POTASSIUM CHLORIDE [Concomitant]
     Indication: PRODUCT USED FOR UNKNOWN INDICATION
     Route: 065
  25. OXYCODONE HCL [Concomitant]
     Indication: BACK PAIN
     Dosage: ONCE DAILY
     Route: 065
  26. METOPROLOL TARTRATE [Suspect]
     Indication: HYPERTENSION
     Dosage: 2 PER DAY
     Route: 065
     Dates: start: 20090101
  27. COREG [Suspect]
     Indication: CARDIAC DISORDER
     Route: 065
  28. PROSCAR [Suspect]
     Indication: PRODUCT USED FOR UNKNOWN INDICATION
     Route: 065
  29. TOPROL-XL [Suspect]
     Indication: PRODUCT USED FOR UNKNOWN INDICATION
     Route: 065
  30. ZOCOR [Suspect]
     Indication: PRODUCT USED FOR UNKNOWN INDICATION
     Route: 065
  31. ALPRAZOLAM [Suspect]
     Indication: PRODUCT USED FOR UNKNOWN INDICATION
     Route: 065
  32. LANTUS [Concomitant]
     Indication: DIABETES MELLITUS
     Dosage: ONCE DAILY
     Route: 065
  33. MOTRIN [Suspect]
     Route: 065
  34. GLUCOPHAGE [Suspect]
     Indication: PRODUCT USED FOR UNKNOWN INDICATION
     Route: 065
  35. LOTRIMIN [Suspect]
     Indication: PRODUCT USED FOR UNKNOWN INDICATION
     Route: 065
  36. CODEINE SULFATE [Suspect]
     Indication: PRODUCT USED FOR UNKNOWN INDICATION
     Route: 065
  37. FISH OIL [Concomitant]
     Indication: PRODUCT USED FOR UNKNOWN INDICATION
     Route: 065
  38. LUMIGAN [Concomitant]
     Indication: ABNORMAL SENSATION IN EYE
     Dosage: ONCE DAILY
     Route: 065
  39. LIPITOR [Suspect]
     Indication: PRODUCT USED FOR UNKNOWN INDICATION
     Route: 065
  40. CYCLOSPORINE [Suspect]
     Indication: PRODUCT USED FOR UNKNOWN INDICATION
     Route: 065
  41. ZETIA [Suspect]
     Indication: PRODUCT USED FOR UNKNOWN INDICATION
     Route: 065
  42. ADVIL [Suspect]
     Indication: BACK PAIN
     Dosage: AS NEEDED
     Route: 065
     Dates: end: 20110301
  43. ALLOPURINOL [Concomitant]
     Indication: PRODUCT USED FOR UNKNOWN INDICATION
     Dosage: 1 PER DAY
     Route: 065

REACTIONS (14)
  - NAUSEA [None]
  - FATIGUE [None]
  - DRUG HYPERSENSITIVITY [None]
  - HIP ARTHROPLASTY [None]
  - MYALGIA [None]
  - BLOOD GLUCOSE INCREASED [None]
  - SLEEP DISORDER [None]
  - SKIN IRRITATION [None]
  - ASTHENIA [None]
  - BACK PAIN [None]
  - ABASIA [None]
  - VOMITING [None]
  - CONSTIPATION [None]
  - DYSPNOEA [None]
